FAERS Safety Report 21469084 (Version 1)
Quarter: 2022Q4

REPORT INFORMATION
  Report Type: Other
  Country: GB (occurrence: GB)
  Receive Date: 20221018
  Receipt Date: 20221018
  Transmission Date: 20230112
  Serious: Yes (Death, Other)
  Sender: FDA-Public Use
  Company Number: GB-CELLTRION INC.-2022GB016738

PATIENT

DRUGS (10)
  1. INFLIXIMAB [Suspect]
     Active Substance: INFLIXIMAB
     Indication: Psoriatic arthropathy
     Dosage: UNK
     Dates: start: 20220216
  2. AMITRIPTYLINE [Concomitant]
     Active Substance: AMITRIPTYLINE
  3. BACLOFEN [Concomitant]
     Active Substance: BACLOFEN
  4. ETORICOXIB [Concomitant]
     Active Substance: ETORICOXIB
  5. METHADONE [Concomitant]
     Active Substance: METHADONE HYDROCHLORIDE
  6. OMEPRAZOLE [Concomitant]
     Active Substance: OMEPRAZOLE
  7. PERICIAZINE [Concomitant]
     Active Substance: PERICIAZINE
  8. PROPRANOLOL [Concomitant]
     Active Substance: PROPRANOLOL HYDROCHLORIDE
  9. ETHINYL ESTRADIOL\LEVONORGESTREL [Concomitant]
     Active Substance: ETHINYL ESTRADIOL\LEVONORGESTREL
  10. VENLAFAXINE [Concomitant]
     Active Substance: VENLAFAXINE HYDROCHLORIDE

REACTIONS (5)
  - Respiratory depression [Fatal]
  - Hyperlactacidaemia [Fatal]
  - Hyperkalaemia [Fatal]
  - Pneumonia [Fatal]
  - Pleural effusion [Fatal]

NARRATIVE: CASE EVENT DATE: 20220921
